FAERS Safety Report 23580679 (Version 1)
Quarter: 2024Q1

REPORT INFORMATION
  Report Type: Report from Study
  Country: EG (occurrence: EG)
  Receive Date: 20240229
  Receipt Date: 20240229
  Transmission Date: 20240410
  Serious: No
  Sender: FDA-Public Use
  Company Number: EG-002147023-NVSC2022EG163232

PATIENT
  Age: 15 Year
  Sex: Female

DRUGS (6)
  1. OMNITROPE [Suspect]
     Active Substance: SOMATROPIN
     Indication: Growth hormone deficiency
     Dosage: 1.5 MG, QD
     Route: 058
     Dates: start: 20220414
  2. OMNITROPE [Suspect]
     Active Substance: SOMATROPIN
     Dosage: 0.5 MG, QD
     Route: 058
     Dates: start: 202204
  3. HAEMA CAPS [Concomitant]
     Indication: Malnutrition
     Dosage: 1 DF, QD
     Route: 048
     Dates: start: 20220414
  4. OCTOZINC [Concomitant]
     Indication: Malnutrition
     Dosage: 1 DF, QD
     Route: 048
     Dates: start: 20220414
  5. Ossofortin [Concomitant]
     Indication: Malnutrition
     Dosage: 1 DF, QD
     Route: 048
     Dates: start: 20220414
  6. VITAMIN D [Concomitant]
     Active Substance: VITAMIN D NOS
     Indication: Malnutrition
     Dosage: UNK, QD
     Route: 048
     Dates: start: 20220414

REACTIONS (4)
  - Wrong technique in product usage process [Not Recovered/Not Resolved]
  - Drug dose omission by device [Not Recovered/Not Resolved]
  - Multiple use of single-use product [Not Recovered/Not Resolved]
  - Device defective [Recovered/Resolved]

NARRATIVE: CASE EVENT DATE: 20220414
